FAERS Safety Report 9581814 (Version 2)
Quarter: 2013Q4

REPORT INFORMATION
  Report Type: Spontaneous
  Country: JP (occurrence: JP)
  Receive Date: 20131002
  Receipt Date: 20131009
  Transmission Date: 20140711
  Serious: Yes (Hospitalization, Other)
  Sender: FDA-Public Use
  Company Number: JP-PFIZER INC-2013276994

PATIENT
  Sex: Female

DRUGS (1)
  1. ZITHROMAC [Suspect]
     Dosage: UNK
     Route: 048
     Dates: start: 201309, end: 201309

REACTIONS (3)
  - Drug eruption [Recovered/Resolved]
  - Pyrexia [Unknown]
  - Local swelling [Unknown]
